FAERS Safety Report 22277353 (Version 3)
Quarter: 2023Q2

REPORT INFORMATION
  Report Type: Report from Study
  Country: BR (occurrence: BR)
  Receive Date: 20230503
  Receipt Date: 20230515
  Transmission Date: 20230722
  Serious: Yes (Other)
  Sender: FDA-Public Use
  Company Number: BR-002147023-NVSC2023BR081530

PATIENT
  Age: 44 Year
  Sex: Female
  Weight: 48 kg

DRUGS (3)
  1. HYRIMOZ [Suspect]
     Active Substance: ADALIMUMAB-ADAZ
     Indication: Juvenile idiopathic arthritis
     Dosage: 1 DOSAGE FORM (1 AMPOULE) EVERY 15 DAYS
     Route: 058
     Dates: start: 20230403
  2. HYRIMOZ [Suspect]
     Active Substance: ADALIMUMAB-ADAZ
     Dosage: UNK
     Route: 065
  3. HYRIMOZ [Suspect]
     Active Substance: ADALIMUMAB-ADAZ
     Dosage: 40 MG/ 0.8ML
     Route: 065

REACTIONS (18)
  - Application site mass [Recovered/Resolved]
  - Tachycardia [Recovered/Resolved]
  - Asphyxia [Recovered/Resolved]
  - Application site hypoaesthesia [Recovered/Resolved]
  - Headache [Not Recovered/Not Resolved]
  - Dizziness [Unknown]
  - Heart rate increased [Recovered/Resolved]
  - Insomnia [Unknown]
  - Application site burn [Recovered/Resolved]
  - Head discomfort [Not Recovered/Not Resolved]
  - Malaise [Unknown]
  - Application site hypoaesthesia [Recovered/Resolved]
  - Inappropriate schedule of product administration [Unknown]
  - Accidental exposure to product [Unknown]
  - Device physical property issue [Unknown]
  - Poor quality device used [Unknown]
  - Intentional dose omission [Unknown]
  - Drug ineffective [Unknown]

NARRATIVE: CASE EVENT DATE: 20230403
